FAERS Safety Report 5290040-5 (Version None)
Quarter: 2007Q1

REPORT INFORMATION
  Report Type: 
  Country: None (occurrence: None)
  Receive Date: 20070330
  Receipt Date: 20070301
  Transmission Date: 20070707
  Serious: Yes (Life-Threatening, Hospitalization, Disabling)
  Sender: FDA-Public Use
  Company Number: GXKR2007NL02810

PATIENT
  Age: 60 Year
  Sex: Male
  Weight: 68 kg

DRUGS (1)
  1. AMOXICILLIN SODIUM+POTASSIUM CLAVULANATE SANDOZ (NGX)(AMOXICILLIN, CLA [Suspect]
     Indication: BURSITIS
     Dosage: 1 DF, TID, ORAL
     Route: 048
     Dates: start: 20070202

REACTIONS (7)
  - COLITIS [None]
  - EROSIVE DUODENITIS [None]
  - ERYTHEMA [None]
  - FLUID INTAKE REDUCED [None]
  - GENITAL PAIN [None]
  - SKIN EXFOLIATION [None]
  - STOMATITIS [None]
